FAERS Safety Report 8309225 (Version 2)
Quarter: 2013Q1

REPORT INFORMATION
  Report Type: Spontaneous
  Country: US (occurrence: US)
  Receive Date: 20111223
  Receipt Date: 20130225
  Transmission Date: 20140127
  Serious: Yes (Hospitalization)
  Sender: FDA-Public Use
  Company Number: US-BIOGENIDEC-2011BI047835

PATIENT
  Age: 39 Year
  Sex: Female

DRUGS (1)
  1. TYSABRI [Suspect]
     Indication: MULTIPLE SCLEROSIS
     Route: 042
     Dates: start: 20081119

REACTIONS (10)
  - Appendicitis [Recovered/Resolved]
  - Benign biliary neoplasm [Recovered/Resolved]
  - Gallbladder enlargement [Recovered/Resolved]
  - Post procedural complication [Recovered/Resolved]
  - Band sensation [Recovered/Resolved]
  - Muscle spasms [Recovered/Resolved]
  - Local swelling [Recovered/Resolved]
  - Bleeding varicose vein [Recovered/Resolved]
  - Mycotic allergy [Unknown]
  - Procedural pain [Recovered/Resolved]
